FAERS Safety Report 5801456-X (Version None)
Quarter: 2008Q3

REPORT INFORMATION
  Report Type: 
  Country: None (occurrence: None)
  Receive Date: 20080703
  Receipt Date: 20080703
  Transmission Date: 20090109
  Serious: Yes (Hospitalization)
  Sender: FDA-Public Use
  Company Number: None

PATIENT
  Sex: Male
  Weight: 23.587 kg

DRUGS (3)
  1. STRA 30MG SHIRE [Suspect]
     Indication: ATTENTION DEFICIT/HYPERACTIVITY DISORDER
     Dosage: 30 MG DAILY PO
     Route: 048
  2. SEROQUEL [Suspect]
     Indication: AGGRESSION
     Dosage: 400MG DIVIDED THRU 4 DOS PO
     Route: 048
  3. SEROQUEL [Suspect]

REACTIONS (1)
  - ERYTHEMA MULTIFORME [None]
